FAERS Safety Report 22310186 (Version 2)
Quarter: 2024Q1

REPORT INFORMATION
  Report Type: Spontaneous
  Country: FR (occurrence: FR)
  Receive Date: 20230511
  Receipt Date: 20240319
  Transmission Date: 20240410
  Serious: Yes (Hospitalization)
  Sender: FDA-Public Use
  Company Number: None

PATIENT
  Age: 29 Year
  Sex: Female

DRUGS (3)
  1. CETIRIZINE [Suspect]
     Active Substance: CETIRIZINE HYDROCHLORIDE
     Indication: Product used for unknown indication
     Dosage: CETIRIZINE DICHLORHYDRATE
     Route: 065
  2. GABAPENTIN [Suspect]
     Active Substance: GABAPENTIN
     Indication: Product used for unknown indication
     Route: 065
  3. PAROXETINE [Suspect]
     Active Substance: PAROXETINE
     Indication: Product used for unknown indication
     Dosage: PAROXETINE HYDROCHLORIDE, ANHYDROUS
     Route: 065

REACTIONS (2)
  - Chemical submission [Recovering/Resolving]
  - Anxiety [Recovered/Resolved]

NARRATIVE: CASE EVENT DATE: 20230405
